FAERS Safety Report 4740567-7 (Version None)
Quarter: 2005Q3

REPORT INFORMATION
  Report Type: 
  Country: None (occurrence: None)
  Receive Date: 20050801
  Receipt Date: 20041012
  Transmission Date: 20060218
  Serious: No
  Sender: FDA-Public Use
  Company Number: 209247

PATIENT
  Age: 48 Year
  Sex: Female
  Weight: 56.2 kg

DRUGS (5)
  1. RITUXAN [Suspect]
     Indication: IDIOPATHIC THROMBOCYTOPENIC PURPURA
     Dosage: 750 MG, UNK, INTRAVENOUS
     Route: 042
     Dates: start: 20040703, end: 20040703
  2. RITUXAN [Suspect]
     Indication: IDIOPATHIC THROMBOCYTOPENIC PURPURA
     Dosage: 750 MG, UNK, INTRAVENOUS
     Route: 042
     Dates: start: 20040709, end: 20040709
  3. RITUXAN [Suspect]
     Indication: IDIOPATHIC THROMBOCYTOPENIC PURPURA
     Dosage: 750 MG, UNK, INTRAVENOUS
     Route: 042
     Dates: start: 20040719, end: 20040719
  4. KLONOPIN [Concomitant]
  5. ORAL CONTRACEPTIVE (ORAL CONTRACEPTIVE NOS) [Concomitant]

REACTIONS (1)
  - SERUM SICKNESS [None]
